FAERS Safety Report 8852375 (Version 2)
Quarter: 2012Q4

REPORT INFORMATION
  Report Type: 
  Country: JP (occurrence: JP)
  Receive Date: 20121022
  Receipt Date: 20121105
  Transmission Date: 20130627
  Serious: Yes (Hospitalization, Other)
  Sender: FDA-Public Use
  Company Number: JP-PFIZER INC-2012237402

PATIENT
  Age: 47 Year
  Sex: Male

DRUGS (2)
  1. CELECOX [Suspect]
     Indication: LUMBAR SPONDYLOSIS
     Dosage: 200 mg, UNK/D
     Route: 048
     Dates: start: 20120901, end: 20120906
  2. RINDERON-VG [Concomitant]
     Dosage: UNK
     Dates: start: 20120906

REACTIONS (2)
  - Meningitis [Recovered/Resolved]
  - Herpes zoster [Recovered/Resolved]
